FAERS Safety Report 4316317-5 (Version None)
Quarter: 2004Q1

REPORT INFORMATION
  Report Type: 
  Country: None (occurrence: None)
  Receive Date: 20040310
  Receipt Date: 20040122
  Transmission Date: 20041129
  Serious: Yes (Disabling, Other)
  Sender: FDA-Public Use
  Company Number: HQWYE564027JAN04

PATIENT
  Age: 63 Year
  Sex: Male
  Weight: 118.04 kg

DRUGS (5)
  1. PROTONIX [Suspect]
     Indication: GASTROOESOPHAGEAL REFLUX DISEASE
     Dosage: 40 MG 1 X PER 1 DAY DISEASE (LLT: GERD)
     Route: 048
     Dates: start: 20010812
  2. AVAPRO [Concomitant]
  3. LANTUS [Concomitant]
  4. NOVOLIN N [Concomitant]
  5. ACTOS [Concomitant]

REACTIONS (1)
  - ERECTILE DYSFUNCTION [None]
